FAERS Safety Report 17841450 (Version 2)
Quarter: 2020Q2

REPORT INFORMATION
  Report Type: Spontaneous
  Country: PT (occurrence: PT)
  Receive Date: 20200529
  Receipt Date: 20200624
  Transmission Date: 20200714
  Serious: Yes (Other)
  Sender: FDA-Public Use
  Company Number: PT-TEVA-2020-PT-1241324

PATIENT
  Age: 59 Year
  Sex: Male

DRUGS (1)
  1. HYDROXYCHLOROQUINE [Suspect]
     Active Substance: HYDROXYCHLOROQUINE
     Indication: COVID-19
     Dosage: 200 MG BID. UNIT DOSE: 400 MG
     Route: 048
     Dates: start: 20200314, end: 20200323

REACTIONS (3)
  - Hepatic function abnormal [Recovered/Resolved]
  - Cholestasis [Recovered/Resolved]
  - COVID-19 treatment [Unknown]

NARRATIVE: CASE EVENT DATE: 20200320
